FAERS Safety Report 8601197-X (Version None)
Quarter: 2012Q3

REPORT INFORMATION
  Report Type: 
  Country: None (occurrence: None)
  Receive Date: 20120817
  Receipt Date: 20120816
  Transmission Date: 20120928
  Serious: Yes (Life-Threatening, Other)
  Sender: FDA-Public Use
  Company Number: PHHY2011DE89859

PATIENT
  Sex: Female

DRUGS (4)
  1. CLOZAPINE [Suspect]
     Dosage: 200 MG, UNK
     Route: 048
     Dates: start: 20070101
  2. TAMOXIFEN CITRATE [Concomitant]
  3. CLOZAPINE [Suspect]
     Indication: SCHIZOPHRENIA
     Dosage: 100 MG, UNK
     Route: 048
  4. CLOZAPINE [Suspect]
     Dosage: 300 MG, QD
     Route: 048

REACTIONS (1)
  - BREAST CANCER [None]
